FAERS Safety Report 18533669 (Version 2)
Quarter: 2020Q4

REPORT INFORMATION
  Report Type: Spontaneous
  Country: JP (occurrence: JP)
  Receive Date: 20201123
  Receipt Date: 20201216
  Transmission Date: 20210114
  Serious: Yes (Hospitalization, Other)
  Sender: FDA-Public Use
  Company Number: JP-PFIZER INC-2020453943

PATIENT
  Age: 63 Year
  Sex: Male

DRUGS (6)
  1. SUTENT [Suspect]
     Active Substance: SUNITINIB MALATE
     Dosage: 25 MG (2 CAPSULES), 1X/DAY
     Route: 048
     Dates: start: 20181113, end: 20181126
  2. SUTENT [Suspect]
     Active Substance: SUNITINIB MALATE
     Dosage: 2 DF (2 CAPSULES)
     Dates: end: 20191230
  3. SUTENT [Suspect]
     Active Substance: SUNITINIB MALATE
     Dosage: 25 MG (2 CAPSULES), 1X/DAY
     Route: 048
     Dates: start: 20200826, end: 20200901
  4. SUTENT [Suspect]
     Active Substance: SUNITINIB MALATE
     Dosage: 37.5 MG (3 CAPSULES), 1X/DAY
     Route: 048
     Dates: start: 20200107, end: 20200120
  5. SUTENT [Suspect]
     Active Substance: SUNITINIB MALATE
     Dosage: 37.5 MG (3 CAPSULES), 1X/DAY
     Route: 048
     Dates: start: 20181022, end: 20181105
  6. SUTENT [Suspect]
     Active Substance: SUNITINIB MALATE
     Dosage: 12.5 MG (1 CAPSULES), 1X/DAY
     Route: 048
     Dates: start: 20200916, end: 20200929

REACTIONS (3)
  - Neoplasm progression [Unknown]
  - Blindness transient [Recovered/Resolved]
  - Infarction [Unknown]

NARRATIVE: CASE EVENT DATE: 202011
